FAERS Safety Report 18550095 (Version 4)
Quarter: 2021Q1

REPORT INFORMATION
  Report Type: Spontaneous
  Country: DE (occurrence: DE)
  Receive Date: 20201126
  Receipt Date: 20210202
  Transmission Date: 20210419
  Serious: Yes (Death, Hospitalization)
  Sender: FDA-Public Use
  Company Number: DE-PFIZER INC-2020460962

PATIENT
  Age: 73 Year
  Sex: Female
  Weight: 94 kg

DRUGS (11)
  1. HEMLIBRA [Suspect]
     Active Substance: EMICIZUMAB-KXWH
     Indication: ACQUIRED HAEMOPHILIA
     Dosage: UNK
     Route: 058
     Dates: start: 20201014
  2. PREDNISOLONE. [Concomitant]
     Active Substance: PREDNISOLONE
     Dosage: 100 MG
  3. RITUXIMAB. [Suspect]
     Active Substance: RITUXIMAB
     Dosage: 375 MG/M2
     Route: 065
     Dates: start: 20200925
  4. HAEMOCOMPLETTAN P [Concomitant]
     Active Substance: FIBRINOGEN HUMAN
     Dosage: 2000 MG
     Route: 040
     Dates: start: 20200926
  5. FIBROGAMMIN P [Concomitant]
     Active Substance: FACTOR XIII CONCENTRATE (HUMAN)
     Dosage: 1250 IU
     Route: 040
     Dates: start: 20200926
  6. FIBROGAMMIN P [Concomitant]
     Active Substance: FACTOR XIII CONCENTRATE (HUMAN)
     Dosage: 1250 IU
     Route: 042
     Dates: start: 20201001
  7. CYCLOPHOSPHAMIDE. [Concomitant]
     Active Substance: CYCLOPHOSPHAMIDE
  8. RITUXIMAB. [Suspect]
     Active Substance: RITUXIMAB
     Dosage: 375 MG/M2
     Route: 065
     Dates: start: 20201002
  9. HEMLIBRA [Suspect]
     Active Substance: EMICIZUMAB-KXWH
     Indication: FACTOR VIII DEFICIENCY
     Dosage: 3 MG/KG
     Route: 058
     Dates: start: 20201009
  10. NOVOSEVEN [Concomitant]
     Active Substance: COAGULATION FACTOR VIIA RECOMBINANT HUMAN
     Dosage: 90 UG/KG, UP TO EVERY TWO HOURS
     Route: 040
     Dates: start: 20200924, end: 20201015
  11. RITUXIMAB. [Suspect]
     Active Substance: RITUXIMAB
     Dosage: 375 MG/M2
     Route: 065
     Dates: start: 20201012

REACTIONS (16)
  - Venous haemorrhage [Unknown]
  - Infection [Unknown]
  - Swelling [Recovering/Resolving]
  - Haemorrhage [Unknown]
  - Arterial haemorrhage [Unknown]
  - Sepsis [Unknown]
  - Superior vena cava syndrome [Recovering/Resolving]
  - Gastrointestinal haemorrhage [Recovered/Resolved]
  - Klebsiella test positive [Unknown]
  - Drug level increased [Unknown]
  - Intentional product use issue [Unknown]
  - Multiple organ dysfunction syndrome [Fatal]
  - Haemoglobin decreased [Unknown]
  - Off label use [Unknown]
  - Atrial fibrillation [Unknown]
  - Haematoma [Unknown]

NARRATIVE: CASE EVENT DATE: 20201014
